FAERS Safety Report 5094974-6 (Version None)
Quarter: 2006Q3

REPORT INFORMATION
  Report Type: 
  Country: None (occurrence: None)
  Receive Date: 20060901
  Receipt Date: 20060825
  Transmission Date: 20061208
  Serious: Yes (Other)
  Sender: FDA-Public Use
  Company Number: SK-JNJFOC-20060805679

PATIENT
  Sex: Female

DRUGS (8)
  1. REMICADE [Suspect]
     Dosage: 3RD INFUSION
     Route: 042
  2. REMICADE [Suspect]
     Indication: RHEUMATOID ARTHRITIS
     Dosage: 2 INFUSIONS
     Route: 042
  3. NEORAL [Concomitant]
     Route: 065
  4. METHOTREXATE [Concomitant]
     Route: 065
  5. MELOXICAM [Concomitant]
     Route: 065
  6. DETRALEX [Concomitant]
     Route: 065
  7. ANOPYRIN [Concomitant]
     Route: 065
  8. PHOSPHOLIPIDA ESSENTIALA [Concomitant]
     Route: 065

REACTIONS (8)
  - ANGIONEUROTIC OEDEMA [None]
  - COUGH [None]
  - DYSPEPSIA [None]
  - DYSPNOEA [None]
  - INFUSION RELATED REACTION [None]
  - PALPITATIONS [None]
  - RASH [None]
  - TACHYCARDIA [None]
